FAERS Safety Report 15883644 (Version 1)
Quarter: 2019Q1

REPORT INFORMATION
  Report Type: Spontaneous
  Country: MX (occurrence: MX)
  Receive Date: 20190129
  Receipt Date: 20190129
  Transmission Date: 20190417
  Serious: Yes (Death, Life-Threatening, Other)
  Sender: FDA-Public Use
  Company Number: MX-B.I. PHARMACEUTICALS,INC./RIDGEFIELD-2019-BI-003934

PATIENT
  Age: 65 Year
  Sex: Female

DRUGS (1)
  1. PRADAXAR [Suspect]
     Active Substance: DABIGATRAN ETEXILATE MESYLATE
     Indication: BONE OPERATION
     Route: 065

REACTIONS (5)
  - Fasciitis [Unknown]
  - Pneumonia [Fatal]
  - Haematoma [Unknown]
  - Infection [Unknown]
  - Haemorrhage [Unknown]
